FAERS Safety Report 8224096-4 (Version None)
Quarter: 2012Q1

REPORT INFORMATION
  Report Type: 
  Country: None (occurrence: None)
  Receive Date: 20120320
  Receipt Date: 20120320
  Transmission Date: 20120608
  Serious: Yes (Hospitalization)
  Sender: FDA-Public Use
  Company Number: None

PATIENT
  Age: 64 Year
  Sex: Male
  Weight: 91.1 kg

DRUGS (2)
  1. RISPERIDONE [Suspect]
     Dosage: 2 MG HS PO
     Route: 048
     Dates: start: 20120308, end: 20120315
  2. DIVALPROEX SODIUM [Suspect]
     Dosage: MG PO
     Route: 048
     Dates: start: 20120308

REACTIONS (1)
  - GAIT DISTURBANCE [None]
